FAERS Safety Report 5602746-6 (Version None)
Quarter: 2008Q1

REPORT INFORMATION
  Report Type: 
  Country: None (occurrence: None)
  Receive Date: 20080125
  Receipt Date: 20071003
  Transmission Date: 20080703
  Serious: No
  Sender: FDA-Public Use
  Company Number: A0685941A

PATIENT
  Age: 60 Year
  Sex: Female

DRUGS (7)
  1. HYCAMTIN [Suspect]
     Dosage: 5.7MG WEEKLY
     Route: 042
     Dates: start: 20070323
  2. CENTRUM [Concomitant]
  3. CALCIUM CITRATE [Concomitant]
  4. ACETAMINOPHEN [Concomitant]
  5. TENORMIN [Concomitant]
  6. BLOOD PRESSURE MEDICATION [Concomitant]
  7. PROCARDIA [Concomitant]

REACTIONS (4)
  - ABDOMINAL PAIN UPPER [None]
  - FATIGUE [None]
  - MUSCLE SPASMS [None]
  - PAIN IN EXTREMITY [None]
